FAERS Safety Report 14239190 (Version 1)
Quarter: 2017Q4

REPORT INFORMATION
  Report Type: Spontaneous
  Country: US (occurrence: None)
  Receive Date: 20171129
  Receipt Date: 20171129
  Transmission Date: 20180321
  Serious: No
  Sender: FDA-Public Use
  Company Number: None

PATIENT
  Age: 50 Year
  Sex: Female

DRUGS (1)
  1. HUMIRA [Suspect]
     Active Substance: ADALIMUMAB
     Indication: CROHN^S DISEASE
     Route: 058
     Dates: start: 20160922

REACTIONS (4)
  - Rhinorrhoea [None]
  - Nasopharyngitis [None]
  - Nasal congestion [None]
  - Respiratory disorder [None]

NARRATIVE: CASE EVENT DATE: 20170929
